FAERS Safety Report 10304364 (Version 1)
Quarter: 2014Q3

REPORT INFORMATION
  Report Type: Spontaneous
  Country: US (occurrence: US)
  Receive Date: 20140715
  Receipt Date: 20140715
  Transmission Date: 20150326
  Serious: Yes (Other)
  Sender: FDA-Public Use
  Company Number: US-ROCHE-1434496

PATIENT
  Age: 17 Year
  Sex: Male

DRUGS (2)
  1. TRETINOIN. [Suspect]
     Active Substance: TRETINOIN
     Indication: ACUTE PROMYELOCYTIC LEUKAEMIA
     Route: 048
  2. TRETINOIN. [Suspect]
     Active Substance: TRETINOIN
     Dosage: IN EVENING
     Route: 048

REACTIONS (1)
  - Intracranial pressure increased [Recovered/Resolved]
